FAERS Safety Report 5150710-6 (Version None)
Quarter: 2006Q4

REPORT INFORMATION
  Report Type: 
  Country: None (occurrence: None)
  Receive Date: 20061110
  Receipt Date: 20061110
  Transmission Date: 20070319
  Serious: No
  Sender: FDA-Public Use
  Company Number: None

PATIENT
  Age: 27 Year
  Sex: Female
  Weight: 56.6996 kg

DRUGS (1)
  1. ACETAMINOPHEN [Suspect]
     Indication: HEADACHE
     Dosage: 500MG  ONCE   PO
     Route: 048
     Dates: start: 20061108, end: 20061108

REACTIONS (1)
  - ABDOMINAL PAIN [None]
